FAERS Safety Report 12548546 (Version 1)
Quarter: 2016Q3

REPORT INFORMATION
  Report Type: Spontaneous
  Country: US (occurrence: US)
  Receive Date: 20160712
  Receipt Date: 20160712
  Transmission Date: 20161109
  Serious: No
  Sender: FDA-Public Use
  Company Number: US-009507513-1607USA001380

PATIENT
  Age: 22 Year
  Sex: Female
  Weight: 94.33 kg

DRUGS (1)
  1. NEXPLANON [Suspect]
     Active Substance: ETONOGESTREL
     Indication: CONTRACEPTION
     Dosage: 1 ROD UP TO 3 YEARS
     Route: 059
     Dates: start: 20160122

REACTIONS (5)
  - Nausea [Unknown]
  - Fatigue [Unknown]
  - Breast pain [Unknown]
  - Mood swings [Unknown]
  - Insomnia [Unknown]

NARRATIVE: CASE EVENT DATE: 20160628
